FAERS Safety Report 17842269 (Version 1)
Quarter: 2020Q2

REPORT INFORMATION
  Report Type: Spontaneous
  Country: US (occurrence: US)
  Receive Date: 20200529
  Receipt Date: 20200529
  Transmission Date: 20200714
  Serious: Yes (Hospitalization, Other)
  Sender: FDA-Public Use
  Company Number: US-JNJFOC-20200528348

PATIENT
  Age: 31 Year
  Sex: Female

DRUGS (1)
  1. NORETHINDRONE AND ETHINYL ESTRADIOL [Suspect]
     Active Substance: ETHINYL ESTRADIOL\NORETHINDRONE
     Indication: ORAL CONTRACEPTION
     Route: 048

REACTIONS (4)
  - Portal fibrosis [Recovered/Resolved]
  - Hepatomegaly [Recovered/Resolved]
  - Hepatic fibrosis [Recovered/Resolved]
  - Venoocclusive liver disease [Recovered/Resolved]
